FAERS Safety Report 7815425-1 (Version None)
Quarter: 2011Q4

REPORT INFORMATION
  Report Type: 
  Country: None (occurrence: None)
  Receive Date: 20111014
  Receipt Date: 20111007
  Transmission Date: 20120403
  Serious: Yes (Hospitalization, Disabling, Other)
  Sender: FDA-Public Use
  Company Number: PHHY2011US68614

PATIENT
  Sex: Male
  Weight: 72.562 kg

DRUGS (1)
  1. EXJADE [Suspect]
     Indication: MYELODYSPLASTIC SYNDROME
     Dosage: 3000 MG, QD
     Route: 048
     Dates: start: 20080306

REACTIONS (3)
  - DEAFNESS [None]
  - BACTERAEMIA [None]
  - HYPOACUSIS [None]
